FAERS Safety Report 19891950 (Version 40)
Quarter: 2025Q1

REPORT INFORMATION
  Report Type: Report from Study
  Country: CA (occurrence: CA)
  Receive Date: 20210928
  Receipt Date: 20250318
  Transmission Date: 20250408
  Serious: Yes (Hospitalization, Other)
  Sender: TAKEDA
  Company Number: CA-TAKEDA-2020TUS047552

PATIENT
  Age: 55 Year
  Sex: Female
  Weight: 53 kg

DRUGS (50)
  1. ICATIBANT [Suspect]
     Active Substance: ICATIBANT ACETATE
     Indication: Hereditary angioedema
  2. ICATIBANT [Suspect]
     Active Substance: ICATIBANT ACETATE
     Indication: Hereditary angioedema with C1 esterase inhibitor deficiency
  3. ICATIBANT [Suspect]
     Active Substance: ICATIBANT ACETATE
  4. ICATIBANT [Suspect]
     Active Substance: ICATIBANT ACETATE
  5. ICATIBANT [Suspect]
     Active Substance: ICATIBANT ACETATE
  6. ICATIBANT [Suspect]
     Active Substance: ICATIBANT ACETATE
  7. ICATIBANT [Suspect]
     Active Substance: ICATIBANT ACETATE
  8. ICATIBANT [Suspect]
     Active Substance: ICATIBANT ACETATE
  9. ICATIBANT [Suspect]
     Active Substance: ICATIBANT ACETATE
  10. ICATIBANT [Suspect]
     Active Substance: ICATIBANT ACETATE
  11. ICATIBANT [Suspect]
     Active Substance: ICATIBANT ACETATE
  12. ICATIBANT [Suspect]
     Active Substance: ICATIBANT ACETATE
  13. ICATIBANT [Suspect]
     Active Substance: ICATIBANT ACETATE
  14. ICATIBANT [Suspect]
     Active Substance: ICATIBANT ACETATE
  15. ICATIBANT [Suspect]
     Active Substance: ICATIBANT ACETATE
  16. ICATIBANT [Suspect]
     Active Substance: ICATIBANT ACETATE
  17. ICATIBANT [Suspect]
     Active Substance: ICATIBANT ACETATE
  18. ICATIBANT [Suspect]
     Active Substance: ICATIBANT ACETATE
  19. ICATIBANT [Suspect]
     Active Substance: ICATIBANT ACETATE
  20. ICATIBANT [Suspect]
     Active Substance: ICATIBANT ACETATE
  21. ICATIBANT [Suspect]
     Active Substance: ICATIBANT ACETATE
  22. ICATIBANT [Suspect]
     Active Substance: ICATIBANT ACETATE
  23. ICATIBANT [Suspect]
     Active Substance: ICATIBANT ACETATE
  24. ICATIBANT [Suspect]
     Active Substance: ICATIBANT ACETATE
  25. ICATIBANT [Suspect]
     Active Substance: ICATIBANT ACETATE
  26. ICATIBANT [Suspect]
     Active Substance: ICATIBANT ACETATE
  27. ICATIBANT [Suspect]
     Active Substance: ICATIBANT ACETATE
  28. ICATIBANT [Suspect]
     Active Substance: ICATIBANT ACETATE
  29. HAEGARDA [Concomitant]
     Active Substance: HUMAN C1-ESTERASE INHIBITOR
  30. EZETIMIBE [Concomitant]
     Active Substance: EZETIMIBE
     Indication: Blood cholesterol increased
     Dosage: 10 MILLIGRAM, QD
     Dates: start: 20210118
  31. ATIVAN [Concomitant]
     Active Substance: LORAZEPAM
     Indication: Anxiety
  32. ATIVAN [Concomitant]
     Active Substance: LORAZEPAM
     Indication: Post-traumatic stress disorder
  33. PANTOPRAZOLE SODIUM [Concomitant]
     Active Substance: PANTOPRAZOLE SODIUM
     Indication: Abdominal discomfort
     Dosage: 40 MILLIGRAM, BID
     Dates: start: 20210118
  34. GRAVOL [Concomitant]
     Active Substance: DIMENHYDRINATE
     Indication: Nausea
     Dosage: 25 MILLIGRAM, QD
     Dates: start: 20210118
  35. GRAVOL [Concomitant]
     Active Substance: DIMENHYDRINATE
     Dosage: 50 MILLIGRAM, Q1HR
  36. ZOPICLONE [Concomitant]
     Active Substance: ZOPICLONE
     Indication: Anxiety
     Dosage: 7.5 MILLIGRAM, QD
     Dates: start: 20210118
  37. ZOPICLONE [Concomitant]
     Active Substance: ZOPICLONE
     Indication: Post-traumatic stress disorder
  38. ZOPICLONE [Concomitant]
     Active Substance: ZOPICLONE
     Indication: Sleep disorder
  39. TYLENOL [Concomitant]
     Active Substance: ACETAMINOPHEN
     Indication: Headache
  40. TYLENOL [Concomitant]
     Active Substance: ACETAMINOPHEN
     Indication: Back pain
  41. HYDROMORPHONE [Concomitant]
     Active Substance: HYDROMORPHONE
     Indication: Pain management
  42. HYDROMORPHONE [Concomitant]
     Active Substance: HYDROMORPHONE
     Indication: Abdominal pain
  43. HYDROMORPHONE [Concomitant]
     Active Substance: HYDROMORPHONE
     Indication: Back pain
  44. HUMATE-P [Concomitant]
     Active Substance: HUMAN COAGULATION FACTOR VIII/VON WILLEBRAND FACTOR COMPLEX
     Indication: Von Willebrand^s disease
  45. BENADRYL [Concomitant]
     Active Substance: DIPHENHYDRAMINE HYDROCHLORIDE
     Indication: Product used for unknown indication
  46. ZOFRAN [Concomitant]
     Active Substance: ONDANSETRON HYDROCHLORIDE
     Indication: Hereditary angioedema
  47. BERINERT [Concomitant]
     Active Substance: HUMAN C1-ESTERASE INHIBITOR
  48. LORAZEPAM [Concomitant]
     Active Substance: LORAZEPAM
     Dosage: 0.5 MILLIGRAM, QD
  49. PANTOPRAZOLE [Concomitant]
     Active Substance: PANTOPRAZOLE
     Dosage: 40 MILLIGRAM, QD
  50. AMLODIPINE [Concomitant]
     Active Substance: AMLODIPINE BESYLATE

REACTIONS (34)
  - Road traffic accident [Unknown]
  - Chest injury [Recovered/Resolved]
  - Accidental exposure to product [Unknown]
  - Incorrect dose administered [Unknown]
  - Injection site pain [Unknown]
  - Injection site discharge [Unknown]
  - Arthralgia [Recovered/Resolved]
  - Hypersomnia [Recovered/Resolved]
  - Anxiety [Unknown]
  - Bowel movement irregularity [Recovered/Resolved]
  - Vomiting [Recovered/Resolved]
  - Duodenogastric reflux [Recovered/Resolved]
  - Panic attack [Unknown]
  - Pain in extremity [Recovered/Resolved]
  - Dysphagia [Recovered/Resolved]
  - Insurance issue [Not Recovered/Not Resolved]
  - COVID-19 [Recovering/Resolving]
  - Drug ineffective [Unknown]
  - Product container seal issue [Unknown]
  - Needle issue [Unknown]
  - Blood pressure abnormal [Unknown]
  - Abdominal distension [Unknown]
  - Nasopharyngitis [Unknown]
  - Diarrhoea [Recovered/Resolved]
  - Nausea [Recovered/Resolved]
  - Disturbance in attention [Not Recovered/Not Resolved]
  - Concussion [Not Recovered/Not Resolved]
  - Constipation [Not Recovered/Not Resolved]
  - Stress [Recovered/Resolved]
  - Muscle strain [Not Recovered/Not Resolved]
  - Injury [Not Recovered/Not Resolved]
  - Fall [Not Recovered/Not Resolved]
  - Rib fracture [Unknown]
  - Contusion [Not Recovered/Not Resolved]

NARRATIVE: CASE EVENT DATE: 20201030
